FAERS Safety Report 7643963-3 (Version None)
Quarter: 2011Q3

REPORT INFORMATION
  Report Type: 
  Country: None (occurrence: None)
  Receive Date: 20110729
  Receipt Date: 20100819
  Transmission Date: 20111222
  Serious: No
  Sender: FDA-Public Use
  Company Number: US-GLAXOSMITHKLINE-A0876753A

PATIENT
  Sex: Male

DRUGS (2)
  1. RANITIDINE [Suspect]
     Indication: ULCER
     Dosage: 150MG PER DAY
     Route: 048
  2. ZANTAC [Suspect]
     Indication: ULCER
     Dosage: 150MG PER DAY
     Route: 048

REACTIONS (1)
  - DRUG SCREEN FALSE POSITIVE [None]
